FAERS Safety Report 18456945 (Version 2)
Quarter: 2020Q4

REPORT INFORMATION
  Report Type: Spontaneous
  Country: CO (occurrence: CO)
  Receive Date: 20201103
  Receipt Date: 20201104
  Transmission Date: 20210114
  Serious: Yes (Death, Other)
  Sender: FDA-Public Use
  Company Number: CO-PFIZER INC-2020420631

PATIENT
  Age: 64 Year
  Sex: Female

DRUGS (4)
  1. OXALIPLATIN. [Suspect]
     Active Substance: OXALIPLATIN
     Indication: GALLBLADDER CANCER
     Dosage: UNK, CYCLIC
  2. OXALIPLATIN. [Suspect]
     Active Substance: OXALIPLATIN
     Indication: HEPATIC CANCER METASTATIC
  3. CAPECITABINE. [Concomitant]
     Active Substance: CAPECITABINE
     Indication: GALLBLADDER CANCER
     Dosage: UNK, CYCLIC
  4. CAPECITABINE. [Concomitant]
     Active Substance: CAPECITABINE
     Indication: HEPATIC CANCER METASTATIC

REACTIONS (3)
  - Thrombotic microangiopathy [Fatal]
  - Off label use [Unknown]
  - Product use in unapproved indication [Unknown]
